FAERS Safety Report 6094925-1 (Version None)
Quarter: 2009Q1

REPORT INFORMATION
  Report Type: 
  Country: None (occurrence: None)
  Receive Date: 20090227
  Receipt Date: 20080804
  Transmission Date: 20090719
  Serious: No
  Sender: FDA-Public Use
  Company Number: US-BAYER-200830038NA

PATIENT
  Age: 48 Year
  Sex: Female

DRUGS (1)
  1. BETASERON [Suspect]
     Indication: DRUG USE FOR UNKNOWN INDICATION
     Dates: start: 19980101

REACTIONS (4)
  - ARTHRALGIA [None]
  - CHILLS [None]
  - MEDICATION ERROR [None]
  - NAUSEA [None]
